FAERS Safety Report 13913411 (Version 1)
Quarter: 2017Q3

REPORT INFORMATION
  Report Type: Spontaneous
  Country: US (occurrence: US)
  Receive Date: 20170828
  Receipt Date: 20170828
  Transmission Date: 20171127
  Serious: No
  Sender: FDA-Public Use
  Company Number: US-ROCHE-1131771

PATIENT
  Sex: Female
  Weight: 142.1 kg

DRUGS (6)
  1. NUTROPIN [Suspect]
     Active Substance: SOMATROPIN
     Dosage: 1.2CC, 10 MG VIAL, 33 UNITS OF INSULING SYRINGE
     Route: 065
     Dates: start: 20000921
  2. NUTROPIN [Suspect]
     Active Substance: SOMATROPIN
     Dosage: 1 CC OF LIQUID, 5 MG VIAL, 33 UNITS
     Route: 065
     Dates: start: 20001114
  3. RELAFEN [Concomitant]
     Active Substance: NABUMETONE
  4. NUTROPIN [Suspect]
     Active Substance: SOMATROPIN
     Indication: DWARFISM
     Dosage: DOSE NOT KNOWN
     Route: 065
  5. NUTROPIN [Suspect]
     Active Substance: SOMATROPIN
     Dosage: 10MG VIAL DILUTE IBN 1.2 CC AND INJECT 0.33 CC G HS OR 1.65 MG
     Route: 065
     Dates: start: 20000829
  6. DIFLUCAN [Concomitant]
     Active Substance: FLUCONAZOLE
     Route: 048

REACTIONS (6)
  - Influenza [Unknown]
  - Oedema [Unknown]
  - Rash [Unknown]
  - Musculoskeletal pain [Unknown]
  - Increased viscosity of bronchial secretion [Unknown]
  - Arthralgia [Unknown]
